FAERS Safety Report 6556559-1 (Version None)
Quarter: 2010Q1

REPORT INFORMATION
  Report Type: 
  Country: None (occurrence: None)
  Receive Date: 20100128
  Receipt Date: 20100120
  Transmission Date: 20100710
  Serious: Yes (Other)
  Sender: FDA-Public Use
  Company Number: US-PFIZER INC-2010008849

PATIENT

DRUGS (1)
  1. CAMPTOSAR [Suspect]

REACTIONS (1)
  - MICROANGIOPATHIC HAEMOLYTIC ANAEMIA [None]
